FAERS Safety Report 6645745-8 (Version None)
Quarter: 2010Q1

REPORT INFORMATION
  Report Type: 
  Country: None (occurrence: None)
  Receive Date: 20100323
  Receipt Date: 20100310
  Transmission Date: 20100710
  Serious: Yes (Hospitalization)
  Sender: FDA-Public Use
  Company Number: US-ELI_LILLY_AND_COMPANY-US200906005662

PATIENT
  Sex: Female

DRUGS (27)
  1. BYETTA [Suspect]
     Dosage: 5 UG, 2/D
     Dates: start: 20080219, end: 20080101
  2. ALBUTEROL [Concomitant]
     Dosage: UNK, AS NEEDED
  3. NITROGLYCERIN [Concomitant]
     Dosage: 0.2 MG, DAILY (1/D)
  4. NITROGLYCERIN [Concomitant]
     Dosage: UNK, AS NEEDED
  5. METFORMIN HYDROCHLORIDE [Concomitant]
     Dosage: 1000 MG, 2/D
  6. SPIRONOLACTONE [Concomitant]
     Dosage: UNK, DAILY (1/D)
  7. ATENOLOL [Concomitant]
     Dosage: 50 MG, DAILY (1/D)
  8. OXYBUTYNIN [Concomitant]
     Dosage: 5 MG, DAILY (1/D)
  9. CARDIZEM [Concomitant]
     Dosage: 360 MG, DAILY (1/D)
  10. LASIX [Concomitant]
  11. RISPERDAL [Concomitant]
     Dosage: UNK, UNKNOWN
  12. TYLENOL                                 /SCH/ [Concomitant]
     Dosage: UNK, UNKNOWN
  13. SYNTHROID [Concomitant]
     Dosage: 224 UG, DAILY (1/D)
  14. ZOCOR [Concomitant]
     Dosage: 80 MG, DAILY (1/D)
  15. LEXAPRO [Concomitant]
     Dosage: 20 MG, DAILY (1/D)
  16. HYDROXYZINE [Concomitant]
     Dosage: 50 MG, DAILY (1/D)
  17. BUSPAR [Concomitant]
     Dosage: 15 MG, 3/D
  18. MIRTAZAPINE [Concomitant]
     Dosage: 30 MG, DAILY (1/D)
  19. PHENERGAN HCL [Concomitant]
     Dosage: 25 MG, DAILY (1/D)
  20. VICODIN [Concomitant]
     Dosage: UNK, AS NEEDED
  21. TOPAMAX [Concomitant]
     Dosage: 75 MG, DAILY (1/D)
  22. TEMAZEPAM [Concomitant]
     Dosage: 30 MG, DAILY (1/D)
  23. FENTANYL [Concomitant]
     Dosage: 50 UG, OTHER
  24. MEPROBAMATE [Concomitant]
     Dosage: 10 MG, 4/D
  25. METOCLOPRAMIDE [Concomitant]
     Dosage: 10 MG, 4/D
  26. ZOFRAN [Concomitant]
     Indication: NAUSEA
     Dosage: UNK, AS NEEDED
     Route: 042
     Dates: start: 20080801
  27. CARAFATE [Concomitant]
     Dosage: 1 G, 4/D
     Dates: start: 20080801

REACTIONS (6)
  - DIABETIC GASTROPARESIS [None]
  - GASTRITIS [None]
  - INFECTION [None]
  - PANCREATITIS [None]
  - PANCREATITIS CHRONIC [None]
  - RENAL INJURY [None]
